FAERS Safety Report 9057252 (Version 1)
Quarter: 2013Q1

REPORT INFORMATION
  Report Type: Spontaneous
  Country: BE (occurrence: BE)
  Receive Date: 20130131
  Receipt Date: 20130131
  Transmission Date: 20140127
  Serious: Yes (Life-Threatening)
  Sender: FDA-Public Use
  Company Number: BE-GLAXOSMITHKLINE-B0843653A

PATIENT
  Sex: Male
  Weight: 74.8 kg

DRUGS (5)
  1. TROBALT [Suspect]
     Indication: CONVULSION
     Dosage: 50MG THREE TIMES PER DAY
     Route: 065
     Dates: start: 201204, end: 201204
  2. CARBAMAZEPINE [Concomitant]
     Indication: EPILEPSY
     Dates: start: 1995
  3. DIPHANTOINE [Concomitant]
     Indication: EPILEPSY
  4. GARDENAL [Concomitant]
     Indication: EPILEPSY
     Dates: start: 1990
  5. RISPERDAL [Concomitant]
     Indication: ABNORMAL BEHAVIOUR

REACTIONS (1)
  - Delirium [Recovering/Resolving]
